FAERS Safety Report 9303930 (Version 1)
Quarter: 2013Q2

REPORT INFORMATION
  Report Type: Spontaneous
  Country: US (occurrence: US)
  Receive Date: 20130522
  Receipt Date: 20130522
  Transmission Date: 20140414
  Serious: Yes (Death)
  Sender: FDA-Public Use
  Company Number: US-BRISTOL-MYERS SQUIBB COMPANY-18895979

PATIENT
  Age: 60 Year
  Sex: Female

DRUGS (2)
  1. ORENCIA [Suspect]
  2. XELJANZ [Suspect]
     Dosage: TABS
     Dates: start: 2013

REACTIONS (3)
  - Arthritis infective [Fatal]
  - Hypotension [Fatal]
  - Drug ineffective [Unknown]
